FAERS Safety Report 19601502 (Version 1)
Quarter: 2021Q3

REPORT INFORMATION
  Report Type: Spontaneous
  Country: HU (occurrence: HU)
  Receive Date: 20210723
  Receipt Date: 20210723
  Transmission Date: 20211014
  Serious: Yes (Hospitalization)
  Sender: FDA-Public Use
  Company Number: NVSC2021HU156835

PATIENT
  Age: 14939 Day
  Sex: Female
  Weight: 80 kg

DRUGS (2)
  1. FOSTER [Suspect]
     Active Substance: BECLOMETHASONE\FORMOTEROL
     Indication: PRODUCT USED FOR UNKNOWN INDICATION
     Dosage: UNK (200/6)
     Route: 055
     Dates: start: 20190101
  2. MONTELUKAST [Suspect]
     Active Substance: MONTELUKAST SODIUM
     Indication: PRODUCT USED FOR UNKNOWN INDICATION
     Dosage: 10 MG, QD
     Route: 065
     Dates: start: 20190101

REACTIONS (2)
  - Exposure during pregnancy [Unknown]
  - Asthma [Unknown]

NARRATIVE: CASE EVENT DATE: 20210608
